FAERS Safety Report 25904549 (Version 1)
Quarter: 2025Q4

REPORT INFORMATION
  Report Type: Spontaneous
  Country: BR (occurrence: BR)
  Receive Date: 20251010
  Receipt Date: 20251010
  Transmission Date: 20260117
  Serious: Yes (Death)
  Sender: GENMAB
  Company Number: BR-ABBVIE-6493900

PATIENT
  Sex: Male

DRUGS (1)
  1. EPCORITAMAB [Suspect]
     Active Substance: EPCORITAMAB
     Indication: Follicular lymphoma
     Dosage: UNK, (APPROXIMATELY 3 CYCLES)
     Route: 058

REACTIONS (1)
  - Follicular lymphoma [Fatal]
